FAERS Safety Report 5411624-7 (Version None)
Quarter: 2007Q3

REPORT INFORMATION
  Report Type: 
  Country: None (occurrence: None)
  Receive Date: 20070810
  Receipt Date: 20070730
  Transmission Date: 20080115
  Serious: Yes (Death)
  Sender: FDA-Public Use
  Company Number: GB-PFIZER INC-2007060845

PATIENT
  Age: 68 Year
  Sex: Male

DRUGS (7)
  1. CHAMPIX [Suspect]
     Indication: SMOKING CESSATION THERAPY
     Route: 048
  2. HYDROXOCOBALAMIN [Concomitant]
     Route: 030
  3. ACETYLSALICYLIC ACID SRT [Concomitant]
     Route: 048
  4. BENDROFLUMETHIAZIDE [Concomitant]
     Route: 048
  5. FERROUS SULFATE TAB [Concomitant]
     Route: 048
  6. SIMVASTATIN [Concomitant]
     Route: 048
  7. REMEDEINE [Concomitant]
     Route: 048

REACTIONS (1)
  - CARDIAC ARREST [None]
